FAERS Safety Report 12055291 (Version 2)
Quarter: 2016Q4

REPORT INFORMATION
  Report Type: Report from Study
  Country: None (occurrence: DE)
  Receive Date: 20160209
  Receipt Date: 20161024
  Transmission Date: 20170206
  Serious: Yes (Hospitalization, Other)
  Sender: FDA-Public Use
  Company Number: DE-ABBVIE-16K-062-1551089-00

PATIENT
  Age: 72 Year
  Sex: Female
  Weight: 69 kg

DRUGS (8)
  1. ADENURIC [Concomitant]
     Active Substance: FEBUXOSTAT
     Indication: PRODUCT USED FOR UNKNOWN INDICATION
  2. NOVALGIN [Concomitant]
     Active Substance: METAMIZOLE SODIUM
     Indication: PRODUCT USED FOR UNKNOWN INDICATION
  3. HUMIRA [Suspect]
     Active Substance: ADALIMUMAB
     Indication: PSORIASIS
     Route: 058
     Dates: start: 20110908, end: 20151104
  4. VALSARTAN. [Concomitant]
     Active Substance: VALSARTAN
     Indication: PRODUCT USED FOR UNKNOWN INDICATION
  5. ASPIRIN. [Concomitant]
     Active Substance: ASPIRIN
     Indication: PRODUCT USED FOR UNKNOWN INDICATION
  6. HUMIRA [Suspect]
     Active Substance: ADALIMUMAB
     Indication: PSORIATIC ARTHROPATHY
     Route: 058
     Dates: start: 20151124
  7. LAMOTRIGINE. [Concomitant]
     Active Substance: LAMOTRIGINE
     Indication: PRODUCT USED FOR UNKNOWN INDICATION
  8. RANITIDIN [Concomitant]
     Active Substance: RANITIDINE HYDROCHLORIDE
     Indication: PRODUCT USED FOR UNKNOWN INDICATION

REACTIONS (19)
  - Osteochondrosis [Recovered/Resolved]
  - Intervertebral disc protrusion [Unknown]
  - Atrioventricular block first degree [Unknown]
  - Nuclear magnetic resonance imaging abnormal [Unknown]
  - Median nerve injury [Unknown]
  - Central nervous system inflammation [Unknown]
  - Muscular weakness [Unknown]
  - Vitamin B12 deficiency [Unknown]
  - Hypoaesthesia [Unknown]
  - Hyporeflexia [Unknown]
  - Vasculitis [Unknown]
  - Multifocal motor neuropathy [Recovered/Resolved]
  - DNA antibody positive [Unknown]
  - Precerebral arteriosclerosis [Unknown]
  - Spinal osteoarthritis [Unknown]
  - Fine motor skill dysfunction [Unknown]
  - Peripheral nerve lesion [Recovered/Resolved]
  - Folate deficiency [Unknown]
  - Arthralgia [Unknown]

NARRATIVE: CASE EVENT DATE: 2015
